FAERS Safety Report 6248941-7 (Version None)
Quarter: 2009Q2

REPORT INFORMATION
  Report Type: 
  Country: None (occurrence: None)
  Receive Date: 20090629
  Receipt Date: 20090617
  Transmission Date: 20091009
  Serious: Yes (Death, Other)
  Sender: FDA-Public Use
  Company Number: NZ-AVENTIS-200916310GDDC

PATIENT
  Age: 49 Year
  Sex: Male

DRUGS (5)
  1. LEFLUNOMIDE [Suspect]
     Dates: start: 20060925, end: 20090417
  2. ADALIMUMAB [Suspect]
     Route: 058
     Dates: start: 20080226, end: 20080417
  3. METHOTREXATE [Suspect]
     Route: 048
     Dates: start: 20041124, end: 20080417
  4. PREDNISONE TAB [Concomitant]
     Dosage: DOSE: UNK
     Route: 048
     Dates: start: 20060911, end: 20080401
  5. NAPROXEN [Concomitant]
     Route: 048
     Dates: end: 20080401

REACTIONS (5)
  - CEREBRAL HAEMORRHAGE [None]
  - HYPERTENSION [None]
  - MULTI-ORGAN FAILURE [None]
  - PNEUMONIA [None]
  - SEPSIS [None]
